FAERS Safety Report 8741021 (Version 6)
Quarter: 2013Q1

REPORT INFORMATION
  Report Type: Spontaneous
  Country: FR (occurrence: FR)
  Receive Date: 20120824
  Receipt Date: 20130213
  Transmission Date: 20140127
  Serious: Yes (Death, Life-Threatening, Hospitalization, Other)
  Sender: FDA-Public Use
  Company Number: FR-BRISTOL-MYERS SQUIBB COMPANY-16861197

PATIENT
  Age: 53 Year
  Sex: Female

DRUGS (7)
  1. ORENCIA FOR INJ 250 MG/VIAL [Suspect]
     Dosage: 250 MG POWDER CONCENTRATE FOR SOLUTION FOR INFUSION
     Route: 042
     Dates: start: 201203, end: 20120630
  2. HUMIRA [Suspect]
     Dates: start: 2009, end: 201203
  3. CORTANCYL [Suspect]
     Dosage: 20 MG (PREDNISONE) 1/D OR 1.5/D
     Dates: end: 201207
  4. METFORMINE [Concomitant]
  5. TAHOR [Concomitant]
  6. FOSAVANCE [Concomitant]
  7. INEXIUM [Concomitant]

REACTIONS (5)
  - Progressive multifocal leukoencephalopathy [Fatal]
  - Pericarditis [Recovered/Resolved]
  - Cardiac tamponade [Unknown]
  - Pneumonia pseudomonas aeruginosa [Unknown]
  - Nasopharyngitis [Unknown]
